FAERS Safety Report 6893355-X (Version None)
Quarter: 2010Q3

REPORT INFORMATION
  Report Type: 
  Country: None (occurrence: None)
  Receive Date: 20100731
  Receipt Date: 20090818
  Transmission Date: 20110219
  Serious: No
  Sender: FDA-Public Use
  Company Number: US-PFIZER INC-2009256866

PATIENT
  Sex: Female
  Weight: 52.2 kg

DRUGS (3)
  1. LIPITOR [Suspect]
     Indication: BLOOD CHOLESTEROL ABNORMAL
     Dosage: 10 MG, 1X/DAY
     Route: 048
     Dates: start: 20090811
  2. SYNTHROID [Concomitant]
     Indication: THYROID DISORDER
     Dosage: 0.05 MG, 1X/DAY
     Route: 048
  3. ALENDRONATE SODIUM [Concomitant]
     Indication: BONE DISORDER

REACTIONS (2)
  - HYPOAESTHESIA [None]
  - JOINT STIFFNESS [None]
